FAERS Safety Report 12523386 (Version 3)
Quarter: 2017Q2

REPORT INFORMATION
  Report Type: Spontaneous
  Country: US (occurrence: US)
  Receive Date: 20160703
  Receipt Date: 20170607
  Transmission Date: 20170830
  Serious: Yes (Other)
  Sender: FDA-Public Use
  Company Number: US-ASTRAZENECA-2016SE61720

PATIENT
  Age: 22884 Day
  Sex: Female
  Weight: 62.6 kg

DRUGS (20)
  1. TRAVATAN [Concomitant]
     Active Substance: TRAVOPROST
     Dosage: ONE DROP PER EYE AT BEDTIME
  2. FASLODEX [Suspect]
     Active Substance: FULVESTRANT
     Route: 030
     Dates: start: 201605
  3. VITAMIN D3 [Concomitant]
     Active Substance: CHOLECALCIFEROL
     Dosage: 1000 UNITS ONE TABLET DAILY
  4. ARIMIDEX [Suspect]
     Active Substance: ANASTROZOLE
     Route: 048
     Dates: start: 20130423
  5. VITAMIN C WITH ROSE HIPS [Concomitant]
  6. LIDOCAINE HYDROCHLORIDE. [Concomitant]
     Active Substance: LIDOCAINE HYDROCHLORIDE
     Dosage: APPLY TOPICALLY PRIOR TO INTERCOURSE
  7. AMOUR [Concomitant]
     Indication: THYROID DISORDER
     Route: 048
  8. ESCITALOPRAM OXALATE. [Concomitant]
     Active Substance: ESCITALOPRAM OXALATE
     Route: 048
  9. FASLODEX [Suspect]
     Active Substance: FULVESTRANT
     Indication: ANTIOESTROGEN THERAPY
     Route: 030
  10. IBRANCE [Suspect]
     Active Substance: PALBOCICLIB
     Indication: NEOPLASM MALIGNANT
     Route: 048
     Dates: start: 20160531
  11. METHOCARBAMOL. [Concomitant]
     Active Substance: METHOCARBAMOL
     Indication: MUSCLE SPASMS
     Route: 048
  12. VITAMIN B COMPLEX [Concomitant]
     Active Substance: CYANOCOBALAMIN\DEXPANTHENOL\NIACINAMIDE\PYRIDOXINE HYDROCHLORIDE\RIBOFLAVIN 5^-PHOSPHATE SODIUM\THIAMINE HYDROCHLORIDE\VITAMIN B COMPLEX
     Dosage: ONE TABLET TWICW DAILY
  13. L GLUTAMINE [Concomitant]
     Active Substance: GLUTAMINE
     Dosage: 5GM, 1-2 TABLESPOON  AS REQUIRED.
  14. LEXAPRO [Concomitant]
     Active Substance: ESCITALOPRAM OXALATE
     Indication: ANXIETY
  15. MULTIPLE VITAMINS [Concomitant]
     Active Substance: VITAMINS
     Dosage: ONE TABLET DAILY
  16. ONDANSETRON [Concomitant]
     Active Substance: ONDANSETRON
     Indication: NAUSEA
  17. L-LYSINE [Concomitant]
     Active Substance: LYSINE
  18. PANCREATIN [Concomitant]
     Active Substance: PANCRELIPASE
     Dosage: 1300 MG, 1-2 TABLETS DAILY
  19. LEXAPRO [Concomitant]
     Active Substance: ESCITALOPRAM OXALATE
     Indication: DEPRESSION
  20. MILK THISTLE [Concomitant]
     Active Substance: MILK THISTLE
     Dosage: DAILY

REACTIONS (13)
  - Metastases to lymph nodes [Unknown]
  - Thyroid cancer [Unknown]
  - Yawning [Recovering/Resolving]
  - Breast cancer recurrent [Unknown]
  - Headache [Recovering/Resolving]
  - Osteoporosis [Unknown]
  - Irritability [Unknown]
  - Osteopenia [Unknown]
  - Menopause [Unknown]
  - Nausea [Recovering/Resolving]
  - Metastases to lung [Unknown]
  - Hypersensitivity [Unknown]
  - Feeling hot [Not Recovered/Not Resolved]

NARRATIVE: CASE EVENT DATE: 20130509
